FAERS Safety Report 23034374 (Version 1)
Quarter: 2023Q4

REPORT INFORMATION
  Report Type: Spontaneous
  Country: US (occurrence: US)
  Receive Date: 20231005
  Receipt Date: 20231005
  Transmission Date: 20240109
  Serious: Yes (Life-Threatening, Hospitalization, Other)
  Sender: FDA-Public Use
  Company Number: US-SUN PHARMACEUTICAL INDUSTRIES LTD-2023R1-410531

PATIENT
  Age: 24 Month
  Sex: Female

DRUGS (1)
  1. ONDANSETRON [Suspect]
     Active Substance: ONDANSETRON
     Indication: Product used for unknown indication
     Dosage: 272MG (20.9MG/KG) OF ONDANSETRON IN THE FORM OF EIGHT MG ORAL DISINTEGRATING TABLETS
     Route: 048

REACTIONS (4)
  - Depressed level of consciousness [Unknown]
  - Overdose [Unknown]
  - Seizure [Unknown]
  - Tachycardia [Unknown]
